FAERS Safety Report 21202260 (Version 3)
Quarter: 2022Q4

REPORT INFORMATION
  Report Type: Spontaneous
  Country: US (occurrence: US)
  Receive Date: 20220811
  Receipt Date: 20221128
  Transmission Date: 20230112
  Serious: Yes (Other)
  Sender: FDA-Public Use
  Company Number: US-PFIZER INC-PV202200040568

PATIENT
  Age: 41 Year
  Sex: Female

DRUGS (2)
  1. XELJANZ [Suspect]
     Active Substance: TOFACITINIB CITRATE
     Indication: Rheumatoid arthritis
     Dosage: 5 MG, 2X/DAY
     Route: 048
     Dates: start: 202207, end: 2022
  2. PRISTIQ EXTENDED-RELEASE [Concomitant]
     Active Substance: DESVENLAFAXINE SUCCINATE
     Dosage: UNK

REACTIONS (16)
  - Intervertebral disc protrusion [Unknown]
  - Drug ineffective [Unknown]
  - Somnolence [Unknown]
  - Xanthelasma [Unknown]
  - Musculoskeletal chest pain [Unknown]
  - Balance disorder [Unknown]
  - Nasopharyngitis [Unknown]
  - Fatigue [Unknown]
  - Pain [Unknown]
  - Coccydynia [Not Recovered/Not Resolved]
  - Condition aggravated [Not Recovered/Not Resolved]
  - Gait inability [Unknown]
  - Illness [Unknown]
  - Product dose omission in error [Unknown]
  - Back pain [Unknown]
  - Sciatica [Unknown]

NARRATIVE: CASE EVENT DATE: 20220101
